FAERS Safety Report 5660975-X (Version None)
Quarter: 2008Q1

REPORT INFORMATION
  Report Type: 
  Country: None (occurrence: None)
  Receive Date: 20080311
  Receipt Date: 20080228
  Transmission Date: 20080703
  Serious: Yes (Death, Hospitalization)
  Sender: FDA-Public Use
  Company Number: CA-PFIZER INC-2008007223

PATIENT
  Sex: Male
  Weight: 120 kg

DRUGS (11)
  1. SU-011,248 [Suspect]
     Indication: METASTATIC RENAL CELL CARCINOMA
     Route: 048
     Dates: start: 20070910, end: 20080203
  2. METOPROLOL TARTRATE [Concomitant]
     Route: 048
  3. SENNA [Concomitant]
     Route: 048
  4. WARFARIN SODIUM [Concomitant]
     Route: 048
  5. PERCOCET [Concomitant]
     Route: 048
  6. LOPERAMIDE HCL [Concomitant]
     Route: 048
  7. TYLENOL (CAPLET) [Concomitant]
     Route: 048
  8. PANTOPRAZOLE [Concomitant]
     Route: 048
  9. FERROUS GLUCONATE [Concomitant]
     Route: 048
  10. INNOHEP [Concomitant]
     Route: 058
  11. TALC [Concomitant]
     Dates: start: 20080125, end: 20080129

REACTIONS (5)
  - HYPERHIDROSIS [None]
  - INTERNATIONAL NORMALISED RATIO INCREASED [None]
  - PULMONARY OEDEMA [None]
  - PYREXIA [None]
  - VOMITING [None]
